FAERS Safety Report 4470018-1 (Version None)
Quarter: 2004Q3

REPORT INFORMATION
  Report Type: 
  Country: None (occurrence: None)
  Receive Date: 20040920
  Receipt Date: 20040701
  Transmission Date: 20050211
  Serious: No
  Sender: FDA-Public Use
  Company Number: PHEH2004US07161

PATIENT
  Age: 63 Year
  Sex: Female

DRUGS (3)
  1. ZOMETA [Suspect]
     Indication: BREAST CANCER
     Dosage: MONTHLY, INTRAVENOUS
     Route: 042
     Dates: start: 20040301
  2. CALCIUM [Concomitant]
  3. FEMARA [Concomitant]

REACTIONS (1)
  - FUNGAL INFECTION [None]
